FAERS Safety Report 7203070-0 (Version None)
Quarter: 2010Q4

REPORT INFORMATION
  Report Type: 
  Country: None (occurrence: None)
  Receive Date: 20101229
  Receipt Date: 20101222
  Transmission Date: 20110411
  Serious: Yes (Other)
  Sender: FDA-Public Use
  Company Number: US-ABBOTT-10P-163-0675784-00

PATIENT
  Sex: Male
  Weight: 112.59 kg

DRUGS (1)
  1. TRILIPIX [Suspect]
     Indication: DYSLIPIDAEMIA
     Dosage: UNKNOWN
     Route: 048
     Dates: start: 20100106, end: 20100401

REACTIONS (1)
  - HEPATITIS [None]
